FAERS Safety Report 10230736 (Version 1)
Quarter: 2014Q2

REPORT INFORMATION
  Report Type: Spontaneous
  Country: US (occurrence: US)
  Receive Date: 20140611
  Receipt Date: 20140611
  Transmission Date: 20141212
  Serious: No
  Sender: FDA-Public Use
  Company Number: US-PFIZER INC-2014157541

PATIENT
  Age: 43 Year
  Sex: Female
  Weight: 77.1 kg

DRUGS (6)
  1. SOLU-MEDROL [Suspect]
     Indication: ASTHMA
     Dosage: UNK, AS NEEDED
     Route: 030
     Dates: start: 201003, end: 2012
  2. SOLU-MEDROL [Suspect]
     Indication: TRAUMATIC LUNG INJURY
  3. ALBUTEROL [Concomitant]
     Dosage: UNK
  4. SPIRIVA [Concomitant]
     Dosage: UNK
  5. CYMBALTA [Concomitant]
     Dosage: UNK
  6. SYMBICORT [Concomitant]
     Dosage: UNK

REACTIONS (1)
  - Asthma [Unknown]
